FAERS Safety Report 11626180 (Version 1)
Quarter: 2015Q4

REPORT INFORMATION
  Report Type: Spontaneous
  Country: US (occurrence: US)
  Receive Date: 20151013
  Receipt Date: 20151013
  Transmission Date: 20160304
  Serious: No
  Sender: FDA-Public Use
  Company Number: US-B.I. PHARMACEUTICALS,INC./RIDGEFIELD-2015-BI-53910BP

PATIENT
  Age: 61 Year
  Sex: Male
  Weight: 107 kg

DRUGS (7)
  1. MOBIC [Suspect]
     Active Substance: MELOXICAM
     Indication: JOINT SWELLING
     Dosage: 15 MG
     Route: 048
     Dates: start: 201507, end: 20150820
  2. CRESTOR [Concomitant]
     Active Substance: ROSUVASTATIN CALCIUM
     Indication: BLOOD CHOLESTEROL INCREASED
     Dosage: 5 MG
     Route: 048
     Dates: start: 2013
  3. MOBIC [Suspect]
     Active Substance: MELOXICAM
     Dosage: 15 MG
     Route: 048
     Dates: start: 20150919, end: 20150924
  4. FLUTICASONE [Concomitant]
     Active Substance: FLUTICASONE\FLUTICASONE PROPIONATE
     Indication: HYPERSENSITIVITY
     Dosage: 2 ANZ
     Route: 045
  5. DULERA [Concomitant]
     Active Substance: FORMOTEROL FUMARATE DIHYDRATE\MOMETASONE FUROATE
     Indication: HYPERSENSITIVITY
     Dosage: STRENGTH: 100 MCG/5 MCG
     Route: 055
  6. AXIRON [Concomitant]
     Active Substance: TESTOSTERONE
     Indication: BLOOD TESTOSTERONE DECREASED
     Dosage: 30 MG
     Route: 061
     Dates: start: 2012
  7. ALLEGRA [Concomitant]
     Active Substance: FEXOFENADINE HYDROCHLORIDE
     Indication: HYPERSENSITIVITY
     Dosage: 180 MG
     Route: 048

REACTIONS (2)
  - Off label use [Unknown]
  - Abdominal pain upper [Recovered/Resolved]

NARRATIVE: CASE EVENT DATE: 201507
